FAERS Safety Report 4530504-2 (Version None)
Quarter: 2004Q4

REPORT INFORMATION
  Report Type: 
  Country: None (occurrence: None)
  Receive Date: 20041216
  Receipt Date: 20041203
  Transmission Date: 20050328
  Serious: Yes (Life-Threatening, Hospitalization)
  Sender: FDA-Public Use
  Company Number: HQWYE750203DEC04

PATIENT
  Age: 69 Year
  Sex: Male

DRUGS (2)
  1. CORDARONE [Suspect]
     Indication: ATRIAL FIBRILLATION
     Dosage: 300 MG 1X PER 1 DAY
     Route: 048
     Dates: start: 20040610, end: 20041010
  2. WARFARIN SODIUM [Concomitant]

REACTIONS (3)
  - ALVEOLITIS [None]
  - PULMONARY FIBROSIS [None]
  - PULMONARY HYPERTENSION [None]
